FAERS Safety Report 4431567-5 (Version None)
Quarter: 2004Q3

REPORT INFORMATION
  Report Type: 
  Country: None (occurrence: None)
  Receive Date: 20040824
  Receipt Date: 20040818
  Transmission Date: 20050211
  Serious: Yes (Hospitalization)
  Sender: FDA-Public Use
  Company Number: NO-MERCK-0408NOR00012

PATIENT
  Age: 92 Year
  Sex: Male

DRUGS (2)
  1. METFORMIN [Concomitant]
     Indication: DIABETES MELLITUS
     Route: 048
     Dates: end: 20040718
  2. VIOXX [Suspect]
     Indication: PAIN
     Route: 048
     Dates: start: 20040610, end: 20040718

REACTIONS (2)
  - BLOOD URIC ACID INCREASED [None]
  - RENAL FAILURE ACUTE [None]
